FAERS Safety Report 7672087-4 (Version None)
Quarter: 2011Q3

REPORT INFORMATION
  Report Type: 
  Country: None (occurrence: None)
  Receive Date: 20110809
  Receipt Date: 20110729
  Transmission Date: 20111222
  Serious: Yes (Other)
  Sender: FDA-Public Use
  Company Number: PHHY2011CH37832

PATIENT
  Age: 80 Year
  Sex: Male

DRUGS (3)
  1. GLEEVEC [Suspect]
     Indication: CHRONIC MYELOID LEUKAEMIA
     Dosage: 400 MG, DAILY
     Route: 048
     Dates: start: 20040301
  2. FERROUS SULFATE TAB [Concomitant]
     Indication: IRON DEFICIENCY ANAEMIA
  3. PROTON PUMP INHIBITORS [Concomitant]
     Dosage: 80 MG, DAILY

REACTIONS (2)
  - GASTRITIS EROSIVE [None]
  - IRON DEFICIENCY ANAEMIA [None]
